FAERS Safety Report 10669639 (Version 2)
Quarter: 2014Q4

REPORT INFORMATION
  Report Type: Spontaneous
  Country: US (occurrence: US)
  Receive Date: 20141222
  Receipt Date: 20141229
  Transmission Date: 20150529
  Serious: Yes (Hospitalization, Other)
  Sender: FDA-Public Use
  Company Number: US-B.I. PHARMACEUTICALS,INC./RIDGEFIELD-2014-BI-60942BP

PATIENT
  Sex: Male

DRUGS (1)
  1. PRADAXA [Suspect]
     Active Substance: DABIGATRAN ETEXILATE MESYLATE
     Indication: PRODUCT USED FOR UNKNOWN INDICATION
     Route: 065

REACTIONS (11)
  - Renal haemorrhage [Unknown]
  - Acute kidney injury [Unknown]
  - Pulmonary haemorrhage [Unknown]
  - Rib fracture [Unknown]
  - Renal cyst [Unknown]
  - Chronic kidney disease [Unknown]
  - Fall [Recovered/Resolved]
  - Haematoma [Unknown]
  - Gastrointestinal haemorrhage [Recovered/Resolved]
  - Pneumonia [Unknown]
  - Haemothorax [Unknown]

NARRATIVE: CASE EVENT DATE: 2014
